FAERS Safety Report 8576797-6 (Version None)
Quarter: 2012Q3

REPORT INFORMATION
  Report Type: 
  Country: None (occurrence: None)
  Receive Date: 20120807
  Receipt Date: 20120803
  Transmission Date: 20120928
  Serious: Yes (Hospitalization)
  Sender: FDA-Public Use
  Company Number: AU-AMGEN-US304172

PATIENT
  Age: 63 Year
  Sex: Female

DRUGS (12)
  1. ATENOLOL [Concomitant]
     Dosage: 50 MG, QD
     Route: 065
  2. IRBESARTAN [Concomitant]
     Dosage: 300 MG, 3 TIMES/WK
     Route: 065
  3. CINACALCET HYDROCHLORIDE [Suspect]
     Indication: HYPERPARATHYROIDISM SECONDARY
     Dosage: UNK UNK, UNK
     Dates: start: 20070830, end: 20080811
  4. OMEPRAZOLE [Concomitant]
     Dosage: 20 MG, QD
     Route: 065
  5. AMLODIPINE [Concomitant]
     Dosage: 5 MG, QD
     Route: 065
  6. RENAGEL [Concomitant]
     Dosage: 800 MG, BID
     Route: 048
     Dates: start: 20080703
  7. CALCIUM CARBONATE [Concomitant]
     Dosage: 500 MG, QD
     Route: 065
  8. SIMVASTATIN [Concomitant]
     Dosage: 80 MG, QD
     Route: 065
  9. ESTRADIOL [Concomitant]
     Dosage: 2 MG, UNK
     Route: 065
  10. FOLIC ACID [Concomitant]
     Dosage: 5 MG, QD
     Route: 065
  11. DARBEPOETIN ALFA [Concomitant]
     Dosage: 40 A?G, QWK
     Route: 058
  12. CALCITRIOL [Concomitant]
     Dosage: .25 MG, 2 TIMES/WK
     Route: 065

REACTIONS (1)
  - INTESTINAL OBSTRUCTION [None]
